FAERS Safety Report 25136139 (Version 2)
Quarter: 2025Q2

REPORT INFORMATION
  Report Type: Spontaneous
  Country: US (occurrence: US)
  Receive Date: 20250328
  Receipt Date: 20250406
  Transmission Date: 20250716
  Serious: No
  Sender: BAUSCH AND LOMB
  Company Number: US-BAUSCHBL-2025BNL004945

PATIENT
  Age: 6 Decade
  Sex: Male
  Weight: 72.57 kg

DRUGS (1)
  1. ALAWAY [Suspect]
     Active Substance: KETOTIFEN FUMARATE
     Indication: Eye allergy
     Dosage: ONE DROP EACH EYE TWICE A DAY
     Route: 047
     Dates: start: 202503, end: 202503

REACTIONS (2)
  - Eye disorder [Unknown]
  - Drug ineffective [Unknown]
